FAERS Safety Report 7518082-7 (Version None)
Quarter: 2011Q2

REPORT INFORMATION
  Report Type: 
  Country: None (occurrence: None)
  Receive Date: 20110523
  Receipt Date: 20110512
  Transmission Date: 20111010
  Serious: No
  Sender: FDA-Public Use
  Company Number: US-1185636

PATIENT
  Age: 29 Year
  Sex: Female
  Weight: 185 kg

DRUGS (6)
  1. ORTHO TRI-CYCLEN [Concomitant]
  2. RHINARIS [Concomitant]
  3. VERAMYST [Concomitant]
  4. PANATASE 0.6% NASAL SPRAY [Suspect]
     Indication: NASAL INFLAMMATION
     Dosage: 1-2 SPRAYS IN EACH NOSTIL BID PRN NASAL
     Route: 045
     Dates: start: 20110325, end: 20110331
  5. PANATASE 0.6% NASAL SPRAY [Suspect]
     Indication: MULTIPLE ALLERGIES
     Dosage: 1-2 SPRAYS IN EACH NOSTIL BID PRN NASAL
     Route: 045
     Dates: start: 20110325, end: 20110331
  6. INDOMETHACIN [Concomitant]

REACTIONS (2)
  - DEPRESSION [None]
  - DRUG DOSE OMISSION [None]
